FAERS Safety Report 12564113 (Version 1)
Quarter: 2016Q3

REPORT INFORMATION
  Report Type: Spontaneous
  Country: US (occurrence: US)
  Receive Date: 20160718
  Receipt Date: 20160718
  Transmission Date: 20161109
  Serious: No
  Sender: FDA-Public Use
  Company Number: US-ASTRAZENECA-2016SE69406

PATIENT
  Sex: Female

DRUGS (4)
  1. LANTUS [Concomitant]
     Active Substance: INSULIN GLARGINE
  2. FARXIGA [Suspect]
     Active Substance: DAPAGLIFLOZIN PROPANEDIOL
     Route: 048
  3. VICTOZA [Concomitant]
     Active Substance: LIRAGLUTIDE
  4. METFROMIN [Concomitant]

REACTIONS (2)
  - Peripheral swelling [Recovering/Resolving]
  - Weight increased [Recovering/Resolving]
